FAERS Safety Report 24331038 (Version 3)
Quarter: 2025Q1

REPORT INFORMATION
  Report Type: Spontaneous
  Country: US (occurrence: US)
  Receive Date: 20240918
  Receipt Date: 20250221
  Transmission Date: 20250409
  Serious: No
  Sender: ALEXION PHARMACEUTICALS
  Company Number: 2024A211379

PATIENT

DRUGS (1)
  1. BREZTRI [Suspect]
     Active Substance: BUDESONIDE\FORMOTEROL\GLYCOPYRROLATE

REACTIONS (6)
  - Bacterial infection [Unknown]
  - Device malfunction [Unknown]
  - Device delivery system issue [Unknown]
  - Product taste abnormal [Unknown]
  - Drug dose omission by device [Unknown]
  - Device ineffective [Unknown]
